FAERS Safety Report 23851339 (Version 1)
Quarter: 2024Q2

REPORT INFORMATION
  Report Type: Spontaneous
  Country: US (occurrence: US)
  Receive Date: 20240514
  Receipt Date: 20240514
  Transmission Date: 20240716
  Serious: Yes (Other)
  Sender: FDA-Public Use
  Company Number: US-RISINGPHARMA-US-2024RISLIT00125

PATIENT
  Age: 5 Decade
  Sex: Female

DRUGS (18)
  1. PREDNISONE [Suspect]
     Active Substance: PREDNISONE
     Indication: Lupus vasculitis
     Route: 065
  2. PREDNISONE [Suspect]
     Active Substance: PREDNISONE
     Indication: Lupus vasculitis
  3. VERAPAMIL HYDROCHLORIDE [Suspect]
     Active Substance: VERAPAMIL HYDROCHLORIDE
     Indication: Lupus vasculitis
     Route: 065
  4. VERAPAMIL HYDROCHLORIDE [Suspect]
     Active Substance: VERAPAMIL HYDROCHLORIDE
     Indication: Lupus vasculitis
  5. AZATHIOPRINE [Suspect]
     Active Substance: AZATHIOPRINE
     Indication: Lupus vasculitis
     Route: 065
  6. AZATHIOPRINE [Suspect]
     Active Substance: AZATHIOPRINE
     Indication: Lupus vasculitis
  7. NIFEDIPINE [Suspect]
     Active Substance: NIFEDIPINE
     Indication: Lupus vasculitis
     Route: 065
  8. NIFEDIPINE [Suspect]
     Active Substance: NIFEDIPINE
     Indication: Lupus vasculitis
  9. BELIMUMAB [Suspect]
     Active Substance: BELIMUMAB
     Indication: Lupus vasculitis
     Route: 065
  10. BELIMUMAB [Suspect]
     Active Substance: BELIMUMAB
     Indication: Lupus vasculitis
  11. HYDROXYCHLOROQUINE [Suspect]
     Active Substance: HYDROXYCHLOROQUINE
     Indication: Lupus vasculitis
     Route: 065
  12. HYDROXYCHLOROQUINE [Suspect]
     Active Substance: HYDROXYCHLOROQUINE
     Indication: Lupus vasculitis
  13. SILDENAFIL [Suspect]
     Active Substance: SILDENAFIL
     Indication: Lupus vasculitis
     Route: 065
  14. SILDENAFIL [Suspect]
     Active Substance: SILDENAFIL
     Indication: Lupus vasculitis
     Route: 065
  15. ASPIRIN [Concomitant]
     Active Substance: ASPIRIN
     Indication: Product used for unknown indication
     Route: 065
  16. PENTOXIFYLLINE [Concomitant]
     Active Substance: PENTOXIFYLLINE
     Indication: Product used for unknown indication
     Route: 065
  17. PENTOXIFYLLINE [Concomitant]
     Active Substance: PENTOXIFYLLINE
     Dosage: INCREASED
     Route: 065
  18. ONABOTULINUMTOXINA [Concomitant]
     Active Substance: ONABOTULINUMTOXINA
     Indication: Product used for unknown indication
     Route: 065

REACTIONS (2)
  - Drug ineffective [Unknown]
  - Off label use [Unknown]
